FAERS Safety Report 4438744-8 (Version None)
Quarter: 2004Q3

REPORT INFORMATION
  Report Type: 
  Country: None (occurrence: None)
  Receive Date: 20040830
  Receipt Date: 20040815
  Transmission Date: 20050211
  Serious: Yes (Other)
  Sender: FDA-Public Use
  Company Number: S04-USA-05564-01

PATIENT
  Age: 23 Year
  Sex: Female

DRUGS (2)
  1. LEXAPRO [Suspect]
     Dosage: 10 MG QD PO
     Route: 048
     Dates: start: 20040401, end: 20040816
  2. METHAMPHETAMINES [Concomitant]

REACTIONS (4)
  - ABORTION SPONTANEOUS [None]
  - ASTHENIA [None]
  - DRUG EXPOSURE DURING PREGNANCY [None]
  - PREGNANCY [None]
